FAERS Safety Report 5763539-2 (Version None)
Quarter: 2008Q2

REPORT INFORMATION
  Report Type: 
  Country: None (occurrence: None)
  Receive Date: 20080610
  Receipt Date: 20080529
  Transmission Date: 20081010
  Serious: Yes (Death, Hospitalization)
  Sender: FDA-Public Use
  Company Number: DE-JNJFOC-20080600132

PATIENT
  Age: 54 Year
  Sex: Female

DRUGS (9)
  1. REMICADE [Suspect]
     Indication: RHEUMATOID ARTHRITIS
     Route: 042
  2. ETANERCEPT [Suspect]
     Indication: DRUG USE FOR UNKNOWN INDICATION
  3. METHOTREXATE [Suspect]
  4. METHOTREXATE [Suspect]
     Indication: DRUG USE FOR UNKNOWN INDICATION
  5. KINERET [Concomitant]
  6. ADALIMUMAB [Concomitant]
  7. RITUXIMAB [Concomitant]
  8. RITUXIMAB [Concomitant]
  9. DECORTIN [Concomitant]
     Route: 048

REACTIONS (2)
  - FUNGAL SEPSIS [None]
  - MULTI-ORGAN FAILURE [None]
